FAERS Safety Report 6123991-X (Version None)
Quarter: 2009Q1

REPORT INFORMATION
  Report Type: 
  Country: None (occurrence: None)
  Receive Date: 20090318
  Receipt Date: 20090318
  Transmission Date: 20090719
  Serious: No
  Sender: FDA-Public Use
  Company Number: None

PATIENT
  Sex: Male
  Weight: 94.27 kg

DRUGS (17)
  1. OXYCODONE HCL [Suspect]
     Dosage: 5MG TABLET Q6H ORAL
     Route: 048
     Dates: start: 20090127, end: 20090317
  2. ALLOPURINOL [Concomitant]
  3. ASPIRIN BABY (ACETYLSALICYLIC ACID (CHILDRENS)) [Concomitant]
  4. COLCHICINE [Concomitant]
  5. FIORINAL (BUTALBITAL+ASA+CAFFEINE) [Concomitant]
  6. FLOVENT HFA (FLUTICASONE PROPIONATE ORAL INHALER) [Concomitant]
  7. FOLIC ACID [Concomitant]
  8. FUROSEMIDE [Concomitant]
  9. IBUPROFEN TABLETS [Concomitant]
  10. LISINOPRIL [Concomitant]
  11. MAGNESIUM GLUCONATE [Concomitant]
  12. METHOTREXATE (ORAL) [Concomitant]
  13. MULTI-VITAMINS [Concomitant]
  14. OMEPRAZOLE [Concomitant]
  15. PREDNISONE [Concomitant]
  16. RHINOCORT AQUA (BUDESONIDE NASAL INHALER [Concomitant]
  17. ATENOLOL [Concomitant]

REACTIONS (1)
  - DRUG INTOLERANCE [None]
